FAERS Safety Report 10597566 (Version 1)
Quarter: 2014Q4

REPORT INFORMATION
  Report Type: Spontaneous
  Country: US (occurrence: US)
  Receive Date: 20141121
  Receipt Date: 20141121
  Transmission Date: 20150529
  Serious: Yes (Hospitalization, Other)
  Sender: FDA-Public Use
  Company Number: US-BAYER-2014-170365

PATIENT
  Age: 18 Year
  Sex: Female
  Weight: 70.3 kg

DRUGS (4)
  1. DILANTIN [Concomitant]
     Active Substance: PHENYTOIN
  2. PHENYTOIN. [Concomitant]
     Active Substance: PHENYTOIN
  3. KEPPRA [Concomitant]
     Active Substance: LEVETIRACETAM
  4. YASMIN [Suspect]
     Active Substance: DROSPIRENONE\ETHINYL ESTRADIOL

REACTIONS (4)
  - Thrombotic stroke [None]
  - Cerebrovascular accident [None]
  - Superior sagittal sinus thrombosis [None]
  - Intracranial venous sinus thrombosis [None]

NARRATIVE: CASE EVENT DATE: 20070621
